FAERS Safety Report 10576498 (Version 2)
Quarter: 2014Q4

REPORT INFORMATION
  Report Type: Spontaneous
  Country: FR (occurrence: FR)
  Receive Date: 20141111
  Receipt Date: 20141111
  Transmission Date: 20150529
  Serious: No
  Sender: FDA-Public Use
  Company Number: FR-JNJFOC-20141010744

PATIENT
  Age: 51 Year
  Sex: Female

DRUGS (8)
  1. DUROGESIC [Suspect]
     Active Substance: FENTANYL
     Indication: PAIN
     Route: 062
     Dates: start: 201405
  2. DUROGESIC [Suspect]
     Active Substance: FENTANYL
     Indication: PAIN
     Route: 062
  3. DUROGESIC [Suspect]
     Active Substance: FENTANYL
     Indication: SPINAL OPERATION
     Route: 062
  4. DUROGESIC [Suspect]
     Active Substance: FENTANYL
     Indication: SPINAL OPERATION
     Route: 062
  5. DUROGESIC [Suspect]
     Active Substance: FENTANYL
     Indication: SPINAL OPERATION
     Route: 062
     Dates: start: 201405
  6. DUROGESIC [Suspect]
     Active Substance: FENTANYL
     Indication: PAIN
     Route: 062
  7. DUROGESIC [Suspect]
     Active Substance: FENTANYL
     Indication: SPINAL OPERATION
     Route: 062
     Dates: start: 20140619
  8. DUROGESIC [Suspect]
     Active Substance: FENTANYL
     Indication: PAIN
     Route: 062
     Dates: start: 20140619

REACTIONS (4)
  - Off label use [Unknown]
  - Inappropriate schedule of drug administration [Unknown]
  - Adverse event [Not Recovered/Not Resolved]
  - Pain [Recovered/Resolved]

NARRATIVE: CASE EVENT DATE: 20140201
